FAERS Safety Report 11616426 (Version 2)
Quarter: 2015Q4

REPORT INFORMATION
  Report Type: Report from Study
  Country: ID (occurrence: ID)
  Receive Date: 20151009
  Receipt Date: 20151130
  Transmission Date: 20160304
  Serious: Yes (Other)
  Sender: FDA-Public Use
  Company Number: ID-BAYER-2015-023662

PATIENT
  Age: 63 Year
  Sex: Male

DRUGS (1)
  1. REGORAFENIB [Suspect]
     Active Substance: REGORAFENIB
     Indication: COLORECTAL CANCER METASTATIC
     Dosage: 160 MG, QD
     Route: 048
     Dates: start: 20141117

REACTIONS (11)
  - Aspartate aminotransferase increased [Not Recovered/Not Resolved]
  - Haemoglobin increased [None]
  - Dry skin [None]
  - Flatulence [None]
  - Gamma-glutamyltransferase abnormal [None]
  - Haemoptysis [None]
  - Platelet count abnormal [None]
  - Blood bilirubin abnormal [None]
  - Red blood cell count abnormal [None]
  - Carcinoembryonic antigen increased [None]
  - Haematocrit abnormal [None]

NARRATIVE: CASE EVENT DATE: 20150131
